FAERS Safety Report 11914207 (Version 3)
Quarter: 2018Q1

REPORT INFORMATION
  Report Type: Spontaneous
  Country: US (occurrence: US)
  Receive Date: 20160113
  Receipt Date: 20180322
  Transmission Date: 20180508
  Serious: No
  Sender: FDA-Public Use
  Company Number: US-PFIZER INC-2015161888

PATIENT
  Age: 27 Year
  Sex: Male

DRUGS (3)
  1. LYRICA [Suspect]
     Active Substance: PREGABALIN
     Dosage: 150 MG, 3X/DAY
     Route: 048
  2. LYRICA [Suspect]
     Active Substance: PREGABALIN
     Indication: LUMBAR RADICULOPATHY
     Dosage: 100 MG, 3X/DAY
  3. IBUPROFEN. [Concomitant]
     Active Substance: IBUPROFEN
     Dosage: UNK

REACTIONS (1)
  - Drug effect incomplete [Unknown]
